FAERS Safety Report 21558415 (Version 1)
Quarter: 2022Q4

REPORT INFORMATION
  Report Type: Spontaneous
  Country: UA (occurrence: UA)
  Receive Date: 20221107
  Receipt Date: 20221107
  Transmission Date: 20230112
  Serious: Yes (Death, Hospitalization)
  Sender: FDA-Public Use
  Company Number: UA-BoehringerIngelheim-2022-BI-200190

PATIENT
  Age: 67 Year
  Sex: Male
  Weight: 85 kg

DRUGS (2)
  1. ALTEPLASE [Suspect]
     Active Substance: ALTEPLASE
     Indication: Ischaemic stroke
     Route: 041
     Dates: start: 20221026, end: 20221026
  2. TONORMA [Concomitant]
     Indication: Hypertension

REACTIONS (5)
  - Chest pain [Fatal]
  - Nausea [Fatal]
  - Vomiting [Fatal]
  - Hyperhidrosis [Fatal]
  - Blood pressure decreased [Unknown]

NARRATIVE: CASE EVENT DATE: 20221026
